FAERS Safety Report 16194555 (Version 1)
Quarter: 2019Q2

REPORT INFORMATION
  Report Type: Report from Study
  Country: IT (occurrence: IT)
  Receive Date: 20190414
  Receipt Date: 20190414
  Transmission Date: 20190711
  Serious: Yes (Other)
  Sender: FDA-Public Use
  Company Number: PHHY2019IT085245

PATIENT
  Sex: Male

DRUGS (1)
  1. COSENTYX [Suspect]
     Active Substance: SECUKINUMAB
     Indication: PRODUCT USED FOR UNKNOWN INDICATION
     Dosage: 300 MG, QW (150 MG X 2 PENS, EVERY 7 DAYS)
     Route: 065
     Dates: start: 20190318

REACTIONS (2)
  - Diabetes mellitus [Unknown]
  - Psoriasis [Recovering/Resolving]
